FAERS Safety Report 5947855-7 (Version None)
Quarter: 2008Q4

REPORT INFORMATION
  Report Type: 
  Country: None (occurrence: None)
  Receive Date: 20081107
  Receipt Date: 20081022
  Transmission Date: 20090506
  Serious: Yes (Other)
  Sender: FDA-Public Use
  Company Number: A-JP2008-22426

PATIENT
  Age: 24 Year
  Sex: Female

DRUGS (4)
  1. TRACLEER [Suspect]
     Indication: PULMONARY ARTERIAL HYPERTENSION
     Dosage: ORAL
     Route: 048
  2. EPOPROSTENOL SODIUM [Concomitant]
  3. SILDENAFIL CITRATE [Concomitant]
  4. NITRIC OXIDE [Concomitant]

REACTIONS (4)
  - HYPOVENTILATION [None]
  - LEFT VENTRICULAR FAILURE [None]
  - POSTPARTUM DISORDER [None]
  - RESPIRATORY TRACT HAEMORRHAGE [None]
